FAERS Safety Report 24149935 (Version 3)
Quarter: 2025Q2

REPORT INFORMATION
  Report Type: Other
  Country: US (occurrence: US)
  Receive Date: 20240730
  Receipt Date: 20250513
  Transmission Date: 20250716
  Serious: No
  Sender: TRAVERE THERAPEUTICS
  Company Number: US-TRAVERE-2024TVT00603

PATIENT
  Age: 66 Year
  Sex: Male

DRUGS (2)
  1. FILSPARI [Suspect]
     Active Substance: SPARSENTAN
     Indication: Nephritic syndrome
     Dosage: LOT NUMBER: 1976071, EXPIRY DATE: 31-MAY-2026
     Route: 048
     Dates: start: 202405
  2. FILSPARI [Suspect]
     Active Substance: SPARSENTAN
     Indication: Focal segmental glomerulosclerosis

REACTIONS (5)
  - Abdominal pain upper [Unknown]
  - Somnolence [Unknown]
  - Off label use [Unknown]
  - Abdominal pain upper [Unknown]
  - Fatigue [None]
